FAERS Safety Report 18077503 (Version 1)
Quarter: 2020Q3

REPORT INFORMATION
  Report Type: Spontaneous
  Country: US (occurrence: US)
  Receive Date: 20200727
  Receipt Date: 20200727
  Transmission Date: 20201103
  Serious: No
  Sender: FDA-Public Use
  Company Number: US-GILEAD-2020-0479527

PATIENT
  Age: 64 Year
  Sex: Female
  Weight: 126 kg

DRUGS (1)
  1. REMDESIVIR. [Suspect]
     Active Substance: REMDESIVIR
     Indication: COVID-19
     Route: 042

REACTIONS (2)
  - Product temperature excursion issue [Recovered/Resolved]
  - Product storage error [Recovered/Resolved]
